FAERS Safety Report 10306941 (Version 1)
Quarter: 2014Q3

REPORT INFORMATION
  Report Type: Spontaneous
  Country: US (occurrence: US)
  Receive Date: 20140715
  Receipt Date: 20140715
  Transmission Date: 20150326
  Serious: Yes (Hospitalization, Other)
  Sender: FDA-Public Use
  Company Number: US-AMGEN-USASP2014051764

PATIENT
  Age: 75 Year
  Sex: Female

DRUGS (1)
  1. ENBREL [Suspect]
     Active Substance: ETANERCEPT
     Indication: RHEUMATOID ARTHRITIS
     Dosage: 50 MG, QWK
     Route: 065
     Dates: start: 19990901

REACTIONS (9)
  - Arthrodesis [Recovered/Resolved]
  - Ostectomy [Recovered/Resolved]
  - Hip arthroplasty [Recovered/Resolved]
  - Shoulder arthroplasty [Recovered/Resolved]
  - Joint arthroplasty [Recovered/Resolved]
  - Foot deformity [Recovered/Resolved]
  - Joint injury [Recovered/Resolved]
  - Joint dislocation [Recovered/Resolved]
  - Mobility decreased [Not Recovered/Not Resolved]
